FAERS Safety Report 22273406 (Version 1)
Quarter: 2023Q2

REPORT INFORMATION
  Report Type: Spontaneous
  Country: FR (occurrence: FR)
  Receive Date: 20230502
  Receipt Date: 20230502
  Transmission Date: 20230722
  Serious: Yes (Disabling, Other)
  Sender: FDA-Public Use
  Company Number: FR-AFSSAPS-MP2023000849

PATIENT
  Age: 57 Year
  Sex: Female

DRUGS (3)
  1. PEMETREXED [Suspect]
     Active Substance: PEMETREXED
     Indication: Bronchioloalveolar carcinoma
     Dosage: UNK
     Route: 042
     Dates: start: 202201, end: 202206
  2. KEYTRUDA [Suspect]
     Active Substance: PEMBROLIZUMAB
     Indication: Bronchioloalveolar carcinoma
     Dosage: UNK
     Route: 042
     Dates: start: 202201, end: 202206
  3. CARBOPLATIN [Concomitant]
     Active Substance: CARBOPLATIN
     Indication: Bronchioloalveolar carcinoma
     Dosage: UNK
     Route: 042
     Dates: start: 202201, end: 20220329

REACTIONS (1)
  - Polyarthritis [Not Recovered/Not Resolved]

NARRATIVE: CASE EVENT DATE: 20220601
